FAERS Safety Report 13399758 (Version 1)
Quarter: 2017Q2

REPORT INFORMATION
  Report Type: Spontaneous
  Country: US (occurrence: US)
  Receive Date: 20170404
  Receipt Date: 20170404
  Transmission Date: 20170830
  Serious: Yes (Hospitalization, Disabling)
  Sender: FDA-Public Use
  Company Number: None

PATIENT
  Age: 21 Year
  Sex: Female
  Weight: 56.25 kg

DRUGS (7)
  1. VYVANSE [Concomitant]
     Active Substance: LISDEXAMFETAMINE DIMESYLATE
  2. HYDROCORTISONE 5MG TABLETS [Suspect]
     Active Substance: HYDROCORTISONE
     Indication: PRIMARY ADRENAL INSUFFICIENCY
     Dosage: ?          QUANTITY:140 TABLET(S);?
     Route: 048
     Dates: start: 20170116, end: 20170403
  3. SOLU-CORTEF [Concomitant]
     Active Substance: HYDROCORTISONE SODIUM SUCCINATE
  4. NEXPLANON [Concomitant]
     Active Substance: ETONOGESTREL
  5. MAGNESIUM [Concomitant]
     Active Substance: MAGNESIUM
  6. FLUDROCORTISONE [Concomitant]
     Active Substance: FLUDROCORTISONE
  7. VITAMIN D [Concomitant]
     Active Substance: CHOLECALCIFEROL

REACTIONS (7)
  - Fatigue [None]
  - Product quality issue [None]
  - Headache [None]
  - Dizziness [None]
  - Blood pressure increased [None]
  - Hypotension [None]
  - Tachycardia [None]
